FAERS Safety Report 4410597-3 (Version None)
Quarter: 2004Q3

REPORT INFORMATION
  Report Type: 
  Country: None (occurrence: None)
  Receive Date: 20040728
  Receipt Date: 20040728
  Transmission Date: 20050211
  Serious: Yes (Hospitalization)
  Sender: FDA-Public Use
  Company Number: None

PATIENT
  Age: 64 Year
  Sex: Male

DRUGS (15)
  1. WARFARIN SODIUM [Suspect]
     Indication: ATRIAL FIBRILLATION
     Dosage: 5 MG PO DAILY
     Route: 048
     Dates: end: 20040202
  2. WARFARIN SODIUM [Suspect]
     Indication: DEEP VEIN THROMBOSIS
     Dosage: 5 MG PO DAILY
     Route: 048
     Dates: end: 20040202
  3. VALPROIC ACID [Concomitant]
  4. KEPPRA [Concomitant]
  5. PROTONIX [Concomitant]
  6. DIGOXIN [Concomitant]
  7. ROCEPHIN [Concomitant]
  8. CLINOLA [Concomitant]
  9. TYLENOL [Concomitant]
  10. THIAMINE [Concomitant]
  11. FOLATE [Concomitant]
  12. IRON [Concomitant]
  13. MAG-OX [Concomitant]
  14. METOPROLOL [Concomitant]
  15. MULTI-VITAMIN [Concomitant]

REACTIONS (3)
  - HAEMORRHAGE [None]
  - MENTAL STATUS CHANGES [None]
  - PNEUMONIA ASPIRATION [None]
